FAERS Safety Report 6632280-6 (Version None)
Quarter: 2010Q1

REPORT INFORMATION
  Report Type: 
  Country: None (occurrence: None)
  Receive Date: 20100312
  Receipt Date: 20100308
  Transmission Date: 20100710
  Serious: Yes (Death, Hospitalization, Other)
  Sender: FDA-Public Use
  Company Number: A0809449A

PATIENT
  Age: 36 Year
  Sex: Male

DRUGS (1)
  1. PROMACTA [Suspect]
     Indication: HEPATITIS C
     Dosage: 50MG PER DAY
     Route: 048
     Dates: start: 20090615, end: 20090820

REACTIONS (4)
  - BLOOD BILIRUBIN INCREASED [None]
  - DEATH [None]
  - HEPATIC FAILURE [None]
  - JAUNDICE [None]
